FAERS Safety Report 5735453-X (Version None)
Quarter: 2008Q2

REPORT INFORMATION
  Report Type: 
  Country: None (occurrence: None)
  Receive Date: 20080508
  Receipt Date: 20080508
  Transmission Date: 20081010
  Serious: Yes (Disabling)
  Sender: FDA-Public Use
  Company Number: None

PATIENT
  Age: 49 Year
  Sex: Female
  Weight: 56.6996 kg

DRUGS (1)
  1. CREST PRO HEALTH TOOTHPASTE + CREST PRO HEALTH [Suspect]

REACTIONS (2)
  - ORAL MUCOSAL EXFOLIATION [None]
  - TOOTH DISCOLOURATION [None]
